FAERS Safety Report 13759807 (Version 1)
Quarter: 2017Q3

REPORT INFORMATION
  Report Type: Spontaneous
  Country: DK (occurrence: DK)
  Receive Date: 20170717
  Receipt Date: 20170717
  Transmission Date: 20171127
  Serious: Yes (Hospitalization)
  Sender: FDA-Public Use
  Company Number: DK-NOVOPROD-554035

PATIENT
  Age: 56 Year
  Sex: Female

DRUGS (3)
  1. KLIOGEST [Suspect]
     Active Substance: ESTROGENS
     Indication: MENORRHAGIA
     Dosage: UNK
     Route: 048
  2. CYKLOKAPRON [Suspect]
     Active Substance: TRANEXAMIC ACID
     Indication: MENORRHAGIA
     Dosage: 500GMG, 3X/DAY
     Route: 048
     Dates: start: 19961015, end: 19961206
  3. CYKLOKAPRON [Suspect]
     Active Substance: TRANEXAMIC ACID
     Dosage: 1G, 3X/DAY
     Dates: start: 1996, end: 19961206

REACTIONS (1)
  - Cerebral thrombosis [Recovered/Resolved with Sequelae]

NARRATIVE: CASE EVENT DATE: 19961201
